FAERS Safety Report 17582608 (Version 3)
Quarter: 2020Q2

REPORT INFORMATION
  Report Type: Spontaneous
  Country: US (occurrence: US)
  Receive Date: 20200325
  Receipt Date: 20200409
  Transmission Date: 20200713
  Serious: Yes (Other)
  Sender: FDA-Public Use
  Company Number: US-ALLERGAN-2008728US

PATIENT
  Sex: Female

DRUGS (1)
  1. ARMOUR THYROID [Suspect]
     Active Substance: THYROID, PORCINE
     Indication: HYPOTHYROIDISM
     Dosage: 63 MG, QD
     Route: 048
     Dates: start: 2017, end: 20200323

REACTIONS (9)
  - Seizure [Recovered/Resolved]
  - Alopecia [Unknown]
  - Haematocrit increased [Unknown]
  - Red blood cell count increased [Unknown]
  - Pruritus [Not Recovered/Not Resolved]
  - Transient ischaemic attack [Recovered/Resolved]
  - Rash [Unknown]
  - Histamine level increased [Unknown]
  - Haemoglobin increased [Unknown]

NARRATIVE: CASE EVENT DATE: 2020
